FAERS Safety Report 18977663 (Version 2)
Quarter: 2021Q1

REPORT INFORMATION
  Report Type: Report from Study
  Country: RU (occurrence: RU)
  Receive Date: 20210306
  Receipt Date: 20210325
  Transmission Date: 20210420
  Serious: Yes (Other)
  Sender: FDA-Public Use
  Company Number: NVSC2021RU023962

PATIENT

DRUGS (2)
  1. COSENTYX [Suspect]
     Active Substance: SECUKINUMAB
     Indication: ANKYLOSING SPONDYLITIS
     Dosage: 150 MG (LYOPHILISATE FOR PREPARING OF SOLUTION)
     Route: 058
  2. COSENTYX [Suspect]
     Active Substance: SECUKINUMAB
     Dosage: 300 MG (LYOPHILISATE FOR PREPARING OF SOLUTION)
     Route: 058

REACTIONS (3)
  - Ankylosing spondylitis [Unknown]
  - Pain [Recovering/Resolving]
  - Hepatitis viral [Unknown]
